FAERS Safety Report 15961651 (Version 1)
Quarter: 2019Q1

REPORT INFORMATION
  Report Type: Spontaneous
  Country: US (occurrence: US)
  Receive Date: 20190214
  Receipt Date: 20190214
  Transmission Date: 20190417
  Serious: No
  Sender: FDA-Public Use
  Company Number: US-TAKEDA-2019TUS005822

PATIENT
  Age: 40 Year
  Sex: Female

DRUGS (1)
  1. BRIGATINIB [Suspect]
     Active Substance: BRIGATINIB
     Indication: NON-SMALL CELL LUNG CANCER
     Dosage: UNK UNK, QD
     Route: 048
     Dates: start: 201710

REACTIONS (3)
  - Malaise [Unknown]
  - Bronchitis [Unknown]
  - Aphonia [Unknown]

NARRATIVE: CASE EVENT DATE: 20190206
